FAERS Safety Report 8572716-7 (Version None)
Quarter: 2012Q3

REPORT INFORMATION
  Report Type: 
  Country: None (occurrence: None)
  Receive Date: 20120806
  Receipt Date: 20120731
  Transmission Date: 20120928
  Serious: Yes (Other)
  Sender: FDA-Public Use
  Company Number: US-PFIZER INC-2012182714

PATIENT
  Age: 79 Year
  Sex: Female
  Weight: 45.351 kg

DRUGS (5)
  1. AFLIBERCEPT [Suspect]
     Indication: MACULAR DEGENERATION
     Dosage: UNK
     Dates: start: 20120701
  2. SYNTHROID [Concomitant]
     Indication: THYROIDECTOMY
     Dosage: 200 UG, UNK
  3. RANIBIZUMAB [Suspect]
     Indication: MACULAR DEGENERATION
     Dosage: 1 MG, UNK
     Dates: start: 20120101
  4. KEPPRA [Suspect]
     Indication: CONVULSION
     Dosage: 500 MG, 2X/DAY
  5. DILANTIN-125 [Suspect]
     Indication: CONVULSION
     Dosage: 230 MG,DAILY
     Dates: start: 19700101

REACTIONS (3)
  - PAIN [None]
  - MACULAR DEGENERATION [None]
  - DRUG INEFFECTIVE [None]
